FAERS Safety Report 8990136 (Version 2)
Quarter: 2013Q1

REPORT INFORMATION
  Report Type: Spontaneous
  Country: US (occurrence: US)
  Receive Date: 20121228
  Receipt Date: 20130305
  Transmission Date: 20140127
  Serious: Yes (Other)
  Sender: FDA-Public Use
  Company Number: US-PFIZER INC-2012331456

PATIENT
  Age: 50 Year
  Sex: Male
  Weight: 86.17 kg

DRUGS (7)
  1. LYRICA [Suspect]
     Indication: PERIPHERAL NERVE INJURY
     Dosage: 200 MG, 3X/DAY
     Dates: start: 20100712
  2. LYRICA [Suspect]
     Dosage: UNK
  3. METFORMIN [Concomitant]
     Indication: DIABETES MELLITUS
     Dosage: UNK, HALF TABLET OF 1000MG DAILY IN MORNING AND 1000MG TWO TIMES A DAY (AFTERNOON AND NIGHT)
  4. GLIPIZIDE [Concomitant]
     Indication: DIABETES MELLITUS
     Dosage: UNK (HALF TABLET OF 5MG), 2X/DAY
  5. PRAVASTATIN [Concomitant]
     Indication: BLOOD CHOLESTEROL INCREASED
     Dosage: 40 MG, 1X/DAY
  6. METOPROLOL [Concomitant]
     Indication: HYPERTENSION
     Dosage: 50 MG, 2X/DAY
  7. BENAZEPRIL [Concomitant]
     Indication: HYPERTENSION
     Dosage: 20 MG, 1X/DAY

REACTIONS (2)
  - Weight increased [Unknown]
  - Stress [Unknown]
